FAERS Safety Report 6981293-3 (Version None)
Quarter: 2010Q3

REPORT INFORMATION
  Report Type: 
  Country: None (occurrence: None)
  Receive Date: 20100914
  Receipt Date: 20100914
  Transmission Date: 20110219
  Serious: Yes (Other)
  Sender: FDA-Public Use
  Company Number: US-PFIZER INC-2010082257

PATIENT

DRUGS (2)
  1. TOVIAZ [Suspect]
     Dosage: UNK
  2. LASIX [Concomitant]
     Dosage: UNK

REACTIONS (2)
  - FLUID IMBALANCE [None]
  - URINARY RETENTION [None]
